FAERS Safety Report 22013349 (Version 1)
Quarter: 2023Q1

REPORT INFORMATION
  Report Type: Spontaneous
  Country: US (occurrence: US)
  Receive Date: 20230220
  Receipt Date: 20230220
  Transmission Date: 20230417
  Serious: Yes (Hospitalization)
  Sender: FDA-Public Use
  Company Number: US-JUBILANT CADISTA PHARMACEUTICALS-2023JUB00074

PATIENT
  Age: 63 Year
  Sex: Male

DRUGS (6)
  1. OLANZAPINE [Suspect]
     Active Substance: OLANZAPINE
     Indication: Gastrointestinal stromal tumour
     Dosage: 20 MG
     Dates: start: 201912
  2. OLANZAPINE [Suspect]
     Active Substance: OLANZAPINE
     Dosage: 5 MG, AS NEEDED
  3. AVAPRITINIB [Suspect]
     Active Substance: AVAPRITINIB
     Indication: Gastrointestinal stromal tumour
     Dosage: 300 MG, 1X/DAY
     Dates: start: 202003
  4. AVAPRITINIB [Suspect]
     Active Substance: AVAPRITINIB
     Dosage: 200 MG, 1X/DAY
  5. AVAPRITINIB [Suspect]
     Active Substance: AVAPRITINIB
     Dosage: 100 MG, 1X/DAY
  6. DASATINIB [Concomitant]
     Active Substance: DASATINIB
     Indication: Gastrointestinal stromal tumour

REACTIONS (4)
  - Mental status changes [Recovering/Resolving]
  - Salivary hypersecretion [Recovering/Resolving]
  - Dysphagia [Recovering/Resolving]
  - Drug interaction [Recovered/Resolved]

NARRATIVE: CASE EVENT DATE: 20200101
